FAERS Safety Report 24848029 (Version 1)
Quarter: 2025Q1

REPORT INFORMATION
  Report Type: Spontaneous
  Country: CN (occurrence: CN)
  Receive Date: 20250116
  Receipt Date: 20250116
  Transmission Date: 20250409
  Serious: Yes (Other)
  Sender: JOHNSON AND JOHNSON
  Company Number: CN-JNJFOC-20250106078

PATIENT
  Age: 67 Year
  Sex: Male

DRUGS (4)
  1. SPORANOX [Suspect]
     Active Substance: ITRACONAZOLE
     Indication: Pneumonia
     Route: 048
     Dates: start: 20241104, end: 20241114
  2. SPORANOX [Suspect]
     Active Substance: ITRACONAZOLE
     Indication: Lymphocytic lymphoma
  3. THALIDOMIDE [Suspect]
     Active Substance: THALIDOMIDE
     Indication: Lymphocytic lymphoma
     Route: 048
     Dates: start: 20241104, end: 20241114
  4. THALIDOMIDE [Suspect]
     Active Substance: THALIDOMIDE
     Indication: Pneumonia

REACTIONS (1)
  - Myelosuppression [Recovering/Resolving]

NARRATIVE: CASE EVENT DATE: 20241111
